FAERS Safety Report 8597101-3 (Version None)
Quarter: 2012Q3

REPORT INFORMATION
  Report Type: 
  Country: None (occurrence: None)
  Receive Date: 20120816
  Receipt Date: 20120807
  Transmission Date: 20120928
  Serious: No
  Sender: FDA-Public Use
  Company Number: US-BIOGENIDEC-2011BI028312

PATIENT
  Sex: Male

DRUGS (1)
  1. TYSABRI [Suspect]
     Indication: MULTIPLE SCLEROSIS
     Route: 042
     Dates: start: 20110708

REACTIONS (8)
  - MALAISE [None]
  - GASTRIC DISORDER [None]
  - NAUSEA [None]
  - DRUG EFFECT DECREASED [None]
  - FATIGUE [None]
  - DEPRESSION [None]
  - HEADACHE [None]
  - ABDOMINAL DISCOMFORT [None]
